FAERS Safety Report 16986931 (Version 1)
Quarter: 2019Q4

REPORT INFORMATION
  Report Type: Report from Study
  Country: IT (occurrence: IT)
  Receive Date: 20191102
  Receipt Date: 20191102
  Transmission Date: 20200122
  Serious: Yes (Death)
  Sender: FDA-Public Use
  Company Number: IT-ROCHE-2456224

PATIENT
  Age: 52 Year
  Sex: Female
  Weight: 55 kg

DRUGS (5)
  1. COBIMETINIB. [Suspect]
     Active Substance: COBIMETINIB
     Indication: METASTATIC MALIGNANT MELANOMA
     Route: 048
     Dates: start: 20181127, end: 20190610
  2. NICETILE [Concomitant]
     Active Substance: LEVACECARNINE HYDROCHLORIDE
     Indication: LYMPHOEDEMA
  3. ANANASE [Concomitant]
     Active Substance: BROMELAINS
     Indication: LYMPHOEDEMA
  4. VEMURAFENIB. [Suspect]
     Active Substance: VEMURAFENIB
     Indication: METASTATIC MALIGNANT MELANOMA
     Route: 048
     Dates: start: 20181127, end: 20190610
  5. MICROFLEB [Concomitant]
     Indication: LYMPHOEDEMA

REACTIONS (1)
  - Disease progression [Fatal]

NARRATIVE: CASE EVENT DATE: 20190826
